FAERS Safety Report 5147668-2 (Version None)
Quarter: 2006Q4

REPORT INFORMATION
  Report Type: 
  Country: None (occurrence: None)
  Receive Date: 20061106
  Receipt Date: 20061025
  Transmission Date: 20070319
  Serious: Yes (Life-Threatening, Hospitalization)
  Sender: FDA-Public Use
  Company Number: 802#3#2006-00009

PATIENT
  Age: 89 Year
  Sex: Female

DRUGS (1)
  1. ALPROSTADIL [Suspect]
     Indication: DRUG USE FOR UNKNOWN INDICATION
     Dosage: 160 MCG (80 MCG 2 IN 1 DAY(S)) INTRAVENOUS
     Route: 042
     Dates: start: 20060622, end: 20060714

REACTIONS (1)
  - CARDIAC FAILURE [None]
